FAERS Safety Report 9685081 (Version 1)
Quarter: 2013Q4

REPORT INFORMATION
  Report Type: Spontaneous
  Country: DK (occurrence: DK)
  Receive Date: 20131113
  Receipt Date: 20131113
  Transmission Date: 20140711
  Serious: Yes (Hospitalization)
  Sender: FDA-Public Use
  Company Number: DK-JNJFOC-20131106040

PATIENT
  Age: 84 Year
  Sex: Female
  Weight: 58 kg

DRUGS (7)
  1. XARELTO [Suspect]
     Indication: THROMBOSIS PROPHYLAXIS
     Route: 048
     Dates: start: 20130820
  2. PANTOPRAZOLE [Concomitant]
     Route: 065
  3. CEFUROXIM [Concomitant]
     Indication: PROPHYLAXIS
     Route: 065
     Dates: start: 20130820, end: 20130822
  4. BURANA [Concomitant]
     Indication: ANALGESIC THERAPY
     Route: 065
     Dates: start: 20130820, end: 20130830
  5. OXYNORM [Concomitant]
     Indication: ANALGESIC THERAPY
     Route: 065
     Dates: start: 20130820, end: 20130826
  6. GABAPENTIN [Concomitant]
     Indication: ANALGESIC THERAPY
     Dates: start: 20130820, end: 20130825
  7. DIURAL (FUROSEMIDE) [Concomitant]
     Indication: DIURETIC THERAPY
     Route: 065

REACTIONS (2)
  - Post procedural haemorrhage [Recovered/Resolved]
  - Post procedural oedema [Unknown]
